FAERS Safety Report 23016155 (Version 1)
Quarter: 2023Q4

REPORT INFORMATION
  Report Type: Report from Study
  Country: AU (occurrence: AU)
  Receive Date: 20231002
  Receipt Date: 20231002
  Transmission Date: 20240110
  Serious: Yes (Other)
  Sender: FDA-Public Use
  Company Number: AU-BEH-2023163732

PATIENT
  Sex: Female
  Weight: 67 kg

DRUGS (10)
  1. HIZENTRA [Suspect]
     Active Substance: HUMAN IMMUNOGLOBULIN G
     Indication: Chronic inflammatory demyelinating polyradiculoneuropathy
     Dosage: 7 GRAM, QW
     Route: 058
  2. VENTOLIN [Concomitant]
     Active Substance: ALBUTEROL SULFATE
     Dosage: 5 MILLIGRAM / 2.5 ML, BID
  3. PULMICORT TURBUHALER [Concomitant]
     Active Substance: BUDESONIDE
     Dosage: 1 MILLIGRAM / 2 ML, TIW AT NIGHT
  4. SODIUM CHLORIDE [Concomitant]
     Active Substance: SODIUM CHLORIDE
     Dosage: UNK, TIW MORNING
  5. PREDNISONE [Concomitant]
     Active Substance: PREDNISONE
     Dosage: 5 MILLIGRAM (MANE)
  6. PANTOPRAZOLE SODIUM [Concomitant]
     Active Substance: PANTOPRAZOLE SODIUM
     Dosage: 20 MILLIGRAM (MANE)
  7. LYRICA [Concomitant]
     Active Substance: PREGABALIN
     Dosage: 50 MILLIGRAM 2 X 25 MG (MANE)
  8. ATACAND [Concomitant]
     Active Substance: CANDESARTAN CILEXETIL
     Dosage: 16 MILLIGRAM (MANE)
  9. PIZOTYLINE [Concomitant]
     Active Substance: PIZOTYLINE
     Dosage: 0.5 MILLIGRAM (EVENING)
  10. FELODIPINE [Concomitant]
     Active Substance: FELODIPINE

REACTIONS (1)
  - Nephritis [Unknown]
